FAERS Safety Report 9429029 (Version 1)
Quarter: 2013Q3

REPORT INFORMATION
  Report Type: Spontaneous
  Country: FR (occurrence: FR)
  Receive Date: 20130730
  Receipt Date: 20130730
  Transmission Date: 20140515
  Serious: Yes (Hospitalization)
  Sender: FDA-Public Use
  Company Number: FR-PFIZER INC-2013217817

PATIENT
  Age: 48 Year
  Sex: Male

DRUGS (3)
  1. AMLOR [Suspect]
     Indication: HYPERTENSION
     Dosage: 5 MG, DAILY
     Route: 048
     Dates: start: 20130605
  2. TAVANIC [Suspect]
     Indication: RENAL ABSCESS
     Dosage: 500 MG, DAILY
     Route: 048
     Dates: start: 20130617, end: 20130708
  3. FUCIDINE [Suspect]
     Indication: RENAL ABSCESS
     Dosage: 1.5 G, DAILY
     Route: 048
     Dates: start: 20130616, end: 20130708

REACTIONS (3)
  - Agranulocytosis [Recovered/Resolved]
  - Haemolytic anaemia [Recovered/Resolved]
  - Thrombocytopenia [Recovered/Resolved]
